FAERS Safety Report 26077747 (Version 1)
Quarter: 2025Q4

REPORT INFORMATION
  Report Type: Spontaneous
  Country: US (occurrence: US)
  Receive Date: 20251122
  Receipt Date: 20251122
  Transmission Date: 20260118
  Serious: No
  Sender: MDD OPERATIONS
  Company Number: US-MDD US Operations-MDD202508-003166

PATIENT
  Age: 71 Year
  Sex: Male

DRUGS (4)
  1. ONAPGO [Suspect]
     Active Substance: APOMORPHINE HYDROCHLORIDE
     Indication: Product used for unknown indication
     Dosage: 5-16 HOURS A DAY
     Dates: start: 20250729
  2. ONAPGO [Suspect]
     Active Substance: APOMORPHINE HYDROCHLORIDE
     Dosage: TITRATION
     Dates: start: 20250818
  3. RYTARY [Concomitant]
     Active Substance: CARBIDOPA\LEVODOPA
     Dosage: EVERY TWO HOURS
  4. NOURIANZ [Concomitant]
     Active Substance: ISTRADEFYLLINE
     Dosage: AT BEDTIME

REACTIONS (2)
  - Injection site nodule [Unknown]
  - Somnolence [Unknown]
